FAERS Safety Report 6327058-7 (Version None)
Quarter: 2009Q3

REPORT INFORMATION
  Report Type: 
  Country: None (occurrence: None)
  Receive Date: 20090818
  Receipt Date: 20090608
  Transmission Date: 20100115
  Serious: No
  Sender: FDA-Public Use
  Company Number: WAES 0906USA01432

PATIENT
  Age: 74 Year
  Sex: Female

DRUGS (2)
  1. JANUVIA [Suspect]
     Dosage: 50 MG/PM/PO
     Route: 048
     Dates: start: 20090529
  2. GLUCOTROL [Concomitant]

REACTIONS (4)
  - BLOOD GLUCOSE INCREASED [None]
  - DRUG INEFFECTIVE [None]
  - HEART RATE IRREGULAR [None]
  - LIGAMENT RUPTURE [None]
